FAERS Safety Report 19843902 (Version 1)
Quarter: 2021Q3

REPORT INFORMATION
  Report Type: Spontaneous
  Country: US (occurrence: US)
  Receive Date: 20210916
  Receipt Date: 20210916
  Transmission Date: 20211014
  Serious: Yes (Hospitalization, Other)
  Sender: FDA-Public Use
  Company Number: US-LANTHEUS-LMI-2021-01107

PATIENT
  Age: 53 Year
  Sex: Female

DRUGS (1)
  1. DEFINITY [Suspect]
     Active Substance: PERFLUTREN
     Indication: ECHOCARDIOGRAM
     Dosage: 3 MILLILITRE

REACTIONS (7)
  - Multiple organ dysfunction syndrome [Recovering/Resolving]
  - Haemolysis [Recovering/Resolving]
  - Hypersplenism [Recovering/Resolving]
  - Acute kidney injury [Recovering/Resolving]
  - Sickle cell anaemia with crisis [Recovering/Resolving]
  - Acute chest syndrome [Recovering/Resolving]
  - Lung disorder [Recovering/Resolving]
